FAERS Safety Report 9899948 (Version 2)
Quarter: 2014Q1

REPORT INFORMATION
  Report Type: Report from Study
  Country: US (occurrence: US)
  Receive Date: 20140214
  Receipt Date: 20140225
  Transmission Date: 20141002
  Serious: Yes (Hospitalization)
  Sender: FDA-Public Use
  Company Number: US-BRISTOL-MYERS SQUIBB COMPANY-20174553

PATIENT
  Age: 62 Year
  Sex: Male
  Weight: 103.8 kg

DRUGS (7)
  1. NIVOLUMAB [Suspect]
     Indication: METASTATIC OCULAR MELANOMA
     Dosage: INTER- 25NOV13
     Route: 042
     Dates: start: 20130916
  2. IPILIMUMAB [Suspect]
     Indication: METASTATIC OCULAR MELANOMA
     Route: 042
     Dates: start: 20131211
  3. ATENOLOL [Concomitant]
     Indication: PREMEDICATION
     Dates: start: 20101217
  4. NEXIUM [Concomitant]
     Indication: PREMEDICATION
     Dates: start: 20110127
  5. NIZORAL [Concomitant]
     Indication: PREMEDICATION
     Dosage: 1DF=2%
     Dates: start: 20110920
  6. METFORMIN [Concomitant]
     Indication: PREMEDICATION
     Dates: start: 20120123
  7. ASPIRIN [Concomitant]
     Indication: PREMEDICATION
     Dates: start: 20130211

REACTIONS (1)
  - Lung infection [Recovered/Resolved]
